FAERS Safety Report 6444039-3 (Version None)
Quarter: 2009Q4

REPORT INFORMATION
  Report Type: 
  Country: None (occurrence: None)
  Receive Date: 20091116
  Receipt Date: 20091116
  Transmission Date: 20100525
  Serious: Yes (Other)
  Sender: FDA-Public Use
  Company Number: None

PATIENT
  Age: 28 Year
  Sex: Female
  Weight: 117.9352 kg

DRUGS (1)
  1. AUGMENTIN '125' [Suspect]
     Indication: SINUSITIS
     Dosage: 1 TABLET 2 TIMES DAILY PO
     Route: 048
     Dates: start: 20091111, end: 20091113

REACTIONS (3)
  - DIARRHOEA [None]
  - NAUSEA [None]
  - VOMITING [None]
